FAERS Safety Report 9826221 (Version 1)
Quarter: 2014Q1

REPORT INFORMATION
  Report Type: Spontaneous
  Country: FR (occurrence: FR)
  Receive Date: 20140117
  Receipt Date: 20140117
  Transmission Date: 20141002
  Serious: Yes (Hospitalization)
  Sender: FDA-Public Use
  Company Number: FR-009507513-1401FRA007049

PATIENT
  Sex: Female

DRUGS (3)
  1. SINEMET 100 MG / 10 MG COMPRIME SECABLE [Suspect]
     Indication: PARKINSON^S DISEASE
     Dosage: 2 DF, TID
     Route: 048
     Dates: start: 2009
  2. KARDEGIC [Concomitant]
     Indication: CARDIOVASCULAR EVENT PROPHYLAXIS
     Dosage: 2 DF, BIW
     Route: 048
  3. FLAGYL [Concomitant]
     Indication: COLITIS
     Dosage: 2 DF, BIW
     Route: 048

REACTIONS (3)
  - Hypotension [Unknown]
  - Anaemia [Unknown]
  - Drug ineffective [Unknown]
